FAERS Safety Report 23601723 (Version 1)
Quarter: 2024Q1

REPORT INFORMATION
  Report Type: Spontaneous
  Country: DE (occurrence: DE)
  Receive Date: 20240306
  Receipt Date: 20240306
  Transmission Date: 20240410
  Serious: Yes (Other)
  Sender: FDA-Public Use
  Company Number: DE-SA-SAC20240222000530

PATIENT
  Age: 57 Year
  Sex: Male

DRUGS (3)
  1. DUPIXENT [Suspect]
     Active Substance: DUPILUMAB
     Indication: Chronic rhinosinusitis with nasal polyps
     Dosage: 600 MG, 1X
     Route: 058
     Dates: start: 20240131, end: 20240131
  2. DUPIXENT [Suspect]
     Active Substance: DUPILUMAB
     Dosage: 200 MG, QOW
     Route: 058
     Dates: start: 20240214, end: 20240214
  3. AMOXICILLIN\CLAVULANIC ACID [Concomitant]
     Active Substance: AMOXICILLIN\CLAVULANIC ACID
     Dosage: UNK
     Dates: start: 20240219, end: 20240228

REACTIONS (6)
  - Diverticulitis [Recovered/Resolved]
  - Abdominal pain [Unknown]
  - Fatigue [Recovered/Resolved]
  - Cystitis noninfective [Recovered/Resolved]
  - Gastrointestinal inflammation [Recovered/Resolved]
  - Incorrect dose administered [Unknown]

NARRATIVE: CASE EVENT DATE: 20240101
